FAERS Safety Report 11853017 (Version 1)
Quarter: 2015Q4

REPORT INFORMATION
  Report Type: Spontaneous
  Country: AU (occurrence: AU)
  Receive Date: 20151218
  Receipt Date: 20151218
  Transmission Date: 20160305
  Serious: Yes (Hospitalization)
  Sender: FDA-Public Use
  Company Number: AU-SA-2015SA210633

PATIENT
  Age: 53 Year
  Sex: Female

DRUGS (1)
  1. ALEMTUZUMAB [Suspect]
     Active Substance: ALEMTUZUMAB
     Route: 065
     Dates: start: 20151102, end: 20151106

REACTIONS (3)
  - Dyspnoea [Unknown]
  - Haemolytic anaemia [Not Recovered/Not Resolved]
  - Headache [Unknown]
